FAERS Safety Report 9193395 (Version 3)
Quarter: 2013Q2

REPORT INFORMATION
  Report Type: Report from Study
  Country: FR (occurrence: FR)
  Receive Date: 20130327
  Receipt Date: 20130528
  Transmission Date: 20140414
  Serious: Yes (Hospitalization)
  Sender: FDA-Public Use
  Company Number: FR-PFIZER INC-2013093879

PATIENT
  Age: 53 Year
  Sex: Female
  Weight: 37 kg

DRUGS (4)
  1. CRIZOTINIB [Suspect]
     Indication: NON-SMALL CELL LUNG CANCER
     Dosage: 250 MG, 2X/DAY
     Route: 048
     Dates: start: 20120403, end: 20130318
  2. IMODIUM [Concomitant]
     Indication: DIARRHOEA
     Dosage: UNK
     Route: 048
  3. PRIMPERAN [Concomitant]
     Indication: NAUSEA
     Dosage: 1 DF, 2X/DAY
     Route: 048
  4. INNOHEP [Concomitant]
     Indication: PROPHYLAXIS
     Dosage: 0.5 ML, 1X/DAY
     Route: 058
     Dates: end: 20130415

REACTIONS (1)
  - Interstitial lung disease [Recovered/Resolved]
